FAERS Safety Report 6357607-4 (Version None)
Quarter: 2009Q3

REPORT INFORMATION
  Report Type: 
  Country: None (occurrence: None)
  Receive Date: 20090916
  Receipt Date: 20090909
  Transmission Date: 20100115
  Serious: Yes (Hospitalization)
  Sender: FDA-Public Use
  Company Number: PHHO2009BE04226

PATIENT
  Sex: Female
  Weight: 62.5 kg

DRUGS (14)
  1. CGS 20267 T30748+ [Suspect]
     Indication: BREAST CANCER
     Dosage: 2.5 MG, QD
     Route: 048
     Dates: start: 20040602
  2. ZOMETA [Suspect]
     Dosage: UNK
     Dates: start: 20040604
  3. ZOMETA [Suspect]
     Dosage: UNK
     Dates: start: 20041203
  4. ZOMETA [Suspect]
     Dosage: UNK
     Dates: start: 20050513
  5. ZOMETA [Suspect]
     Dosage: UNK
     Dates: start: 20051118
  6. ZOMETA [Suspect]
     Dosage: UNK
     Dates: start: 20060519
  7. ZOMETA [Suspect]
     Dosage: UNK
     Dates: start: 20061124
  8. ZOMETA [Suspect]
     Dosage: UNK
     Dates: start: 20070525
  9. ZOMETA [Suspect]
     Dosage: UNK
     Dates: start: 20071123
  10. ZOMETA [Suspect]
     Dosage: UNK
     Dates: start: 20080523
  11. ZOMETA [Suspect]
     Dosage: UNK
     Dates: start: 20081121
  12. ZOMETA [Suspect]
     Dosage: UNK
     Dates: start: 20090515
  13. CALCIUM [Concomitant]
  14. VITAMIN D [Concomitant]

REACTIONS (10)
  - ANGINA PECTORIS [None]
  - BUNDLE BRANCH BLOCK LEFT [None]
  - CARDIAC FAILURE [None]
  - CHEST PAIN [None]
  - EJECTION FRACTION DECREASED [None]
  - FATIGUE [None]
  - MITRAL VALVE INCOMPETENCE [None]
  - PULMONARY HYPERTENSION [None]
  - PULMONARY OEDEMA [None]
  - SWELLING [None]
